FAERS Safety Report 12628723 (Version 1)
Quarter: 2016Q3

REPORT INFORMATION
  Report Type: Not Available
  Country: IN (occurrence: IN)
  Receive Date: 20160808
  Receipt Date: 20160808
  Transmission Date: 20161109
  Serious: No
  Sender: FDA-Public Use
  Company Number: IN-LUPIN PHARMACEUTICALS INC.-E2B_00004012

PATIENT
  Age: 68 Year
  Sex: Male

DRUGS (6)
  1. COMBUTOL [Suspect]
     Active Substance: ETHAMBUTOL HYDROCHLORIDE
     Indication: TUBERCULOSIS
     Dosage: 1
     Route: 048
     Dates: start: 20150721
  2. R-CINEX [Suspect]
     Active Substance: ISONIAZID\RIFAMPIN
     Indication: TUBERCULOSIS
     Route: 048
     Dates: start: 20150721
  3. JANUMET 50/500 [Concomitant]
     Indication: DIABETES MELLITUS
     Route: 065
  4. VOLIBO 0.3 [Concomitant]
     Indication: DIABETES MELLITUS
     Route: 065
  5. DYTOR [Concomitant]
     Active Substance: TORSEMIDE
     Indication: HYPERTENSION
     Route: 065
  6. PYZINA 500 MG [Suspect]
     Active Substance: PYRAZINAMIDE
     Indication: TUBERCULOSIS
     Route: 048
     Dates: start: 20150721

REACTIONS (3)
  - Urine flow decreased [Not Recovered/Not Resolved]
  - Hyperhidrosis [Not Recovered/Not Resolved]
  - Decreased appetite [Not Recovered/Not Resolved]

NARRATIVE: CASE EVENT DATE: 20150724
